FAERS Safety Report 6717241-0 (Version None)
Quarter: 2010Q2

REPORT INFORMATION
  Report Type: 
  Country: None (occurrence: None)
  Receive Date: 20100504
  Receipt Date: 20100423
  Transmission Date: 20101027
  Serious: Yes (Other)
  Sender: FDA-Public Use
  Company Number: 2010SP023895

PATIENT
  Age: 30 Year
  Sex: Male

DRUGS (3)
  1. SAPHRIS [Suspect]
     Indication: SCHIZOPHRENIA
     Dosage: 5 MG; PO
     Route: 048
     Dates: start: 20100101, end: 20100101
  2. ZYPREXA [Concomitant]
  3. LEXAPRO [Concomitant]

REACTIONS (2)
  - AGGRESSION [None]
  - INCORRECT ROUTE OF DRUG ADMINISTRATION [None]
